FAERS Safety Report 23535024 (Version 3)
Quarter: 2024Q1

REPORT INFORMATION
  Report Type: Spontaneous
  Country: PL (occurrence: PL)
  Receive Date: 20240217
  Receipt Date: 20240314
  Transmission Date: 20240409
  Serious: Yes (Life-Threatening, Hospitalization, Other)
  Sender: FDA-Public Use
  Company Number: PL-ROCHE-3112501

PATIENT
  Age: 58 Year
  Sex: Female
  Weight: 66 kg

DRUGS (20)
  1. ATEZOLIZUMAB [Suspect]
     Active Substance: ATEZOLIZUMAB
     Indication: Small cell lung cancer extensive stage
     Dosage: START DATE OF MOST RECENT DOSE OF STUDY DRUG PRIOR TO AE AND SAE- 16/MAY/2022, DOSE LAST STUDY DRUG
     Route: 042
     Dates: start: 20211122
  2. ATEZOLIZUMAB [Suspect]
     Active Substance: ATEZOLIZUMAB
     Dosage: 1200MG
     Route: 042
     Dates: start: 20211213
  3. CARBOPLATIN [Suspect]
     Active Substance: CARBOPLATIN
     Indication: Small cell lung cancer extensive stage
     Dosage: 700 MG
     Route: 065
     Dates: start: 20211213
  4. ETOPOSIDE [Suspect]
     Active Substance: ETOPOSIDE
     Indication: Small cell lung cancer extensive stage
     Dosage: 495 MG
     Route: 042
     Dates: start: 20211213
  5. CISPLATIN [Concomitant]
     Active Substance: CISPLATIN
     Indication: Product used for unknown indication
     Dosage: UNK
     Route: 065
     Dates: start: 20220922, end: 20221123
  6. ENOXAPARIN [Concomitant]
     Active Substance: ENOXAPARIN
     Indication: Prophylaxis
     Dosage: UNK, QD
     Route: 065
     Dates: start: 20211213
  7. ETAMSYLAT [Concomitant]
     Indication: Product used for unknown indication
     Dosage: UNK
     Route: 065
     Dates: start: 20220623, end: 20220628
  8. ETAMSYLAT [Concomitant]
     Route: 065
     Dates: start: 20220623, end: 20220628
  9. FLUCONAZOLE [Concomitant]
     Active Substance: FLUCONAZOLE
     Indication: Product used for unknown indication
     Dosage: UNK, QD
     Route: 065
     Dates: start: 20220603, end: 20220608
  10. INSULIN NOS [Concomitant]
     Active Substance: INSULIN NOS
     Indication: Product used for unknown indication
     Dosage: UNK
     Route: 065
     Dates: start: 20220530, end: 20220613
  11. POTASSIUM CHLORIDE [Concomitant]
     Active Substance: POTASSIUM CHLORIDE
     Indication: Product used for unknown indication
     Dosage: UNK
     Route: 065
     Dates: start: 20220615, end: 20220701
  12. MEGESTROLI ACETAS [Concomitant]
     Dosage: QD
     Route: 065
     Dates: start: 20220622, end: 20220701
  13. MEGESTROLI ACETAS [Concomitant]
     Indication: Decreased appetite
     Dosage: UNK, QD
     Route: 065
     Dates: start: 20220622, end: 20220701
  14. MEGESTROLI ACETAS [Concomitant]
     Dosage: UNK
     Route: 065
     Dates: start: 20220622, end: 20220701
  15. MEROPENEM [Concomitant]
     Active Substance: MEROPENEM
     Indication: Product used for unknown indication
     Dosage: 1 G
     Route: 065
     Dates: start: 20220619, end: 20220627
  16. OXYGEN [Concomitant]
     Active Substance: OXYGEN
     Indication: Product used for unknown indication
     Dosage: UNK
     Route: 065
     Dates: start: 20220529, end: 20220617
  17. PREDNISONE [Concomitant]
     Active Substance: PREDNISONE
     Dosage: QD
     Route: 065
     Dates: start: 20220420, end: 20220515
  18. PREDNISONE [Concomitant]
     Active Substance: PREDNISONE
     Indication: Hypothyroidism
     Dosage: UNK UNK, QD
     Route: 065
     Dates: start: 20220420, end: 20220515
  19. TOPOTECAN [Concomitant]
     Active Substance: TOPOTECAN HYDROCHLORIDE
     Indication: Product used for unknown indication
     Dosage: UNK
     Route: 065
     Dates: start: 20230227, end: 20230331
  20. VINCRISTINE [Concomitant]
     Active Substance: VINCRISTINE
     Indication: Product used for unknown indication
     Dosage: UNK
     Route: 065
     Dates: start: 20230824, end: 20231009

REACTIONS (9)
  - Pneumonitis [Recovered/Resolved with Sequelae]
  - Sepsis [Recovered/Resolved]
  - Respiratory failure [Recovered/Resolved]
  - Hepatotoxicity [Recovered/Resolved]
  - Hypothyroidism [Recovering/Resolving]
  - Tongue fungal infection [Recovered/Resolved]
  - Diarrhoea [Recovered/Resolved]
  - Dyspnoea [Recovered/Resolved]
  - Leukopenia [Recovered/Resolved]

NARRATIVE: CASE EVENT DATE: 20220419
